FAERS Safety Report 4309069-6 (Version None)
Quarter: 2004Q1

REPORT INFORMATION
  Report Type: 
  Country: None (occurrence: None)
  Receive Date: 20040301
  Receipt Date: 20040218
  Transmission Date: 20041129
  Serious: Yes (Other)
  Sender: FDA-Public Use
  Company Number: HQWYE100518FEB04

PATIENT
  Age: 65 Year
  Sex: Female

DRUGS (10)
  1. EUPANTOL (PANTOPRAZOLE, TABLET, DELAYED RELEASE) [Suspect]
     Indication: GASTRIC MUCOSAL LESION
     Dosage: 40 MG 1X PER 1 DAY, ORAL
     Route: 048
     Dates: end: 20030926
  2. EUPANTOL (PANTOPRAZOLE, TABLET, DELAYED RELEASE) [Suspect]
     Indication: PROPHYLAXIS
     Dosage: 40 MG 1X PER 1 DAY, ORAL
     Route: 048
     Dates: end: 20030926
  3. EUPRESSYL (URAPIDIL) [Concomitant]
  4. PAROXETINE HCL [Concomitant]
  5. LASIX [Concomitant]
  6. DILTIAZEM HCL [Concomitant]
  7. GLUCOPHAGE [Concomitant]
  8. INSULIN [Concomitant]
  9. TAHOR (ATORVASTATIN,) [Suspect]
     Indication: DYSLIPIDAEMIA
     Dosage: 20 MG 1X PER 1DAY, ORAL
     Route: 048
     Dates: end: 20030221
  10. TILCOTIL (TENOXICAM, ) [Suspect]
     Indication: OSTEOARTHRITIS
     Dosage: 20 MG 1X PER 1 DAY, ORAL
     Route: 048
     Dates: end: 20031017

REACTIONS (4)
  - ANAEMIA [None]
  - LYMPHOPENIA [None]
  - NEUTROPENIA [None]
  - THROMBOCYTOPENIA [None]
